FAERS Safety Report 16724640 (Version 1)
Quarter: 2019Q3

REPORT INFORMATION
  Report Type: Spontaneous
  Country: US (occurrence: US)
  Receive Date: 20190821
  Receipt Date: 20190821
  Transmission Date: 20191005
  Serious: No
  Sender: FDA-Public Use
  Company Number: US-PFIZER INC-2019352396

PATIENT
  Age: 81 Year
  Sex: Female

DRUGS (1)
  1. IBRANCE [Suspect]
     Active Substance: PALBOCICLIB
     Dosage: UNK (HOW MUCH WATER SHE MUST TAKE WITH IBRANCE/DRINK 2 QUARTS OF WATER)

REACTIONS (2)
  - Pollakiuria [Unknown]
  - Polydipsia [Unknown]
